FAERS Safety Report 9201163 (Version 3)
Quarter: 2013Q2

REPORT INFORMATION
  Report Type: Report from Study
  Country: BR (occurrence: BR)
  Receive Date: 20130401
  Receipt Date: 20130604
  Transmission Date: 20140414
  Serious: Yes (Other)
  Sender: FDA-Public Use
  Company Number: PHHY2013BR030960

PATIENT
  Age: 68 Year
  Sex: Female
  Weight: 65 kg

DRUGS (12)
  1. ACLASTA [Suspect]
     Indication: OSTEOPOROSIS
     Dosage: 5 MG/100 ML ONCE A YEAR
     Route: 042
     Dates: start: 2007
  2. ACLASTA [Suspect]
     Dosage: 5 MG/100 ML ONCE A YEAR
     Route: 042
     Dates: start: 2012
  3. ACLASTA [Suspect]
     Dosage: 5 MG/100 ML ONCE A YEAR
     Route: 042
     Dates: start: 201301
  4. PARIET [Concomitant]
     Indication: ABDOMINAL DISCOMFORT
     Dosage: 1 DF, DAILY
     Route: 048
  5. DILACORON [Concomitant]
     Indication: ARRHYTHMIA
     Dosage: 160 MG, 1 TABLETS DAILY
     Route: 048
  6. SIMVASTATIN [Concomitant]
     Indication: BLOOD CHOLESTEROL
     Dosage: 20 MG, 1 TABLET DAILY
     Route: 048
  7. LEXAPRO [Concomitant]
  8. STILNOX [Concomitant]
     Indication: SLEEP DISORDER
     Dosage: 12.5 MG, 1 TABLET DAILY
     Route: 048
  9. ARADOIS [Concomitant]
     Indication: BLOOD PRESSURE
     Dosage: 100 MG, 1 TABLET DAILY
     Route: 048
  10. CALTRATE [Concomitant]
  11. DEPURA [Concomitant]
  12. VITAMIN D NOS [Concomitant]
     Dosage: 30 DRP, ONCE A WEEK

REACTIONS (2)
  - Fall [Recovering/Resolving]
  - Wrist fracture [Recovering/Resolving]
